FAERS Safety Report 22379202 (Version 1)
Quarter: 2023Q2

REPORT INFORMATION
  Report Type: Spontaneous
  Country: FR (occurrence: FR)
  Receive Date: 20230529
  Receipt Date: 20230529
  Transmission Date: 20230721
  Serious: Yes (Other)
  Sender: FDA-Public Use
  Company Number: FR-AFSSAPS-AN2023000417

PATIENT
  Age: 12 Year
  Sex: Female

DRUGS (6)
  1. MORPHINE [Interacting]
     Active Substance: MORPHINE
     Indication: Pain management
     Dosage: 0.8 MILLIGRAM, Q1H
     Route: 040
     Dates: start: 20230302, end: 20230302
  2. NALBUPHINE HYDROCHLORIDE [Interacting]
     Active Substance: NALBUPHINE HYDROCHLORIDE
     Indication: Pain management
     Dosage: 1.88 MILLIGRAM, Q1H
     Route: 040
     Dates: start: 20230302, end: 20230302
  3. METRONIDAZOLE [Concomitant]
     Active Substance: METRONIDAZOLE
     Indication: Product used for unknown indication
     Dosage: 390 MILLIGRAM, TID
     Route: 040
     Dates: start: 20230301, end: 20230303
  4. GENTAMICIN [Concomitant]
     Active Substance: GENTAMICIN
     Indication: Product used for unknown indication
     Dosage: 195 MILLIGRAM, DAILY
     Route: 040
     Dates: start: 20230301, end: 20230303
  5. SPASFON [Concomitant]
     Indication: Product used for unknown indication
     Dosage: 1 DOSAGE FORM, QID
     Route: 040
     Dates: start: 20230302, end: 20230303
  6. CEFTRIAXONE [Concomitant]
     Active Substance: CEFTRIAXONE
     Indication: Product used for unknown indication
     Dosage: 1.5 GRAM, DAILY
     Route: 040
     Dates: start: 20230301, end: 20230305

REACTIONS (3)
  - Drug interaction [Recovered/Resolved]
  - Oxygen saturation decreased [Recovered/Resolved]
  - Respiratory rate decreased [Recovered/Resolved]

NARRATIVE: CASE EVENT DATE: 20230302
